FAERS Safety Report 18037721 (Version 1)
Quarter: 2020Q3

REPORT INFORMATION
  Report Type: Spontaneous
  Country: RU (occurrence: RU)
  Receive Date: 20200717
  Receipt Date: 20200717
  Transmission Date: 20201103
  Serious: Yes (Death)
  Sender: FDA-Public Use
  Company Number: RU-ASTRAZENECA-2020SE88023

PATIENT
  Age: 56 Year
  Sex: Male
  Weight: 68 kg

DRUGS (10)
  1. LEFLOBACT [Concomitant]
     Route: 041
  2. BERODUAL [Concomitant]
     Active Substance: FENOTEROL HYDROBROMIDE\IPRATROPIUM BROMIDE
  3. OMEPRAZOLE. [Concomitant]
     Active Substance: OMEPRAZOLE
  4. DEXAMETHASONE. [Concomitant]
     Active Substance: DEXAMETHASONE
  5. LASIX [Concomitant]
     Active Substance: FUROSEMIDE
     Dosage: 0.5
     Route: 041
  6. PULMICORT TURBUHALER [Suspect]
     Active Substance: BUDESONIDE
     Indication: ASTHMA
     Route: 055
  7. PULMICORT TURBUHALER [Suspect]
     Active Substance: BUDESONIDE
     Indication: CHRONIC OBSTRUCTIVE PULMONARY DISEASE
     Route: 055
  8. SABACOMB [Concomitant]
     Dosage: 250/100 2 INHALATIONS 2 TIMES PER DAY
  9. EUPHYLLIN [Concomitant]
     Dosage: 5.0 PER 200 ML OF 0.9% NACL
     Route: 041
  10. METROGYL [Concomitant]
     Active Substance: METRONIDAZOLE

REACTIONS (2)
  - Respiratory failure [Fatal]
  - Hypotension [Fatal]
